FAERS Safety Report 5463418-4 (Version None)
Quarter: 2007Q3

REPORT INFORMATION
  Report Type: 
  Country: None (occurrence: None)
  Receive Date: 20070920
  Receipt Date: 20070910
  Transmission Date: 20080115
  Serious: Yes (Other)
  Sender: FDA-Public Use
  Company Number: US-KINGPHARMUSA00001-K200701163

PATIENT

DRUGS (7)
  1. KETALAR [Suspect]
     Indication: INDUCTION OF ANAESTHESIA
     Dosage: 5 MG, TWO DOSES
     Route: 042
  2. SEVOFLURANE [Suspect]
     Dosage: 2.4 UNK, UNK
  3. SUCCINYLCHOLINE CHLORIDE [Suspect]
  4. PROPRANOLOL [Concomitant]
  5. MISTABRON [Concomitant]
     Indication: SECRETION DISCHARGE
  6. MUCOSOLVAN                         /00546001/ [Concomitant]
     Indication: SECRETION DISCHARGE
  7. RECOMBINANT HUMAN ACID X-GLUCOSIDASE [Concomitant]
     Dosage: 20 MG/KG, QOW
     Route: 042

REACTIONS (3)
  - BRADYCARDIA [None]
  - SUPRAVENTRICULAR TACHYCARDIA [None]
  - VENTRICULAR TACHYCARDIA [None]
